FAERS Safety Report 5164928-X (Version None)
Quarter: 2006Q4

REPORT INFORMATION
  Report Type: 
  Country: None (occurrence: None)
  Receive Date: 20061124
  Receipt Date: 20061110
  Transmission Date: 20070319
  Serious: Yes (Other)
  Sender: FDA-Public Use
  Company Number: AU-2006-035553

PATIENT
  Age: 53 Year
  Sex: Female

DRUGS (8)
  1. FLUDARABINE PHOSPHATE [Suspect]
     Indication: B-CELL LYMPHOMA
     Dosage: 5 CYCLES
  2. CYCLOPHOSPHAMIDE [Suspect]
     Indication: B-CELL LYMPHOMA
     Dosage: 5 CYCLES, INTRAVENOUS
     Route: 042
  3. IFOSFAMIDE [Concomitant]
  4. CARBOPLATIN [Concomitant]
  5. ETOPOSIDE [Concomitant]
  6. CARMUSTINE [Concomitant]
  7. CYTARABINE [Concomitant]
  8. MELPHALAN (MELPHALAN) [Concomitant]

REACTIONS (1)
  - MYELODYSPLASTIC SYNDROME [None]
